FAERS Safety Report 13647239 (Version 1)
Quarter: 2017Q2

REPORT INFORMATION
  Report Type: Report from Study
  Country: JP (occurrence: JP)
  Receive Date: 20170613
  Receipt Date: 20170613
  Transmission Date: 20170830
  Serious: Yes (Other)
  Sender: FDA-Public Use
  Company Number: JP-VIFOR (INTERNATIONAL) INC.-VIT-2016-05218

PATIENT
  Age: 74 Year
  Sex: Female
  Weight: 43.5 kg

DRUGS (15)
  1. VELPHORO [Suspect]
     Active Substance: FERRIC OXYHYDROXIDE
     Indication: HYPERPHOSPHATAEMIA
     Route: 048
     Dates: start: 20160413, end: 20160604
  2. VELPHORO [Suspect]
     Active Substance: FERRIC OXYHYDROXIDE
     Route: 048
     Dates: start: 20160605, end: 20160617
  3. VELPHORO [Suspect]
     Active Substance: FERRIC OXYHYDROXIDE
     Route: 048
     Dates: start: 20161221
  4. REGPARA [Concomitant]
     Active Substance: CINACALCET HYDROCHLORIDE
     Indication: HYPERPARATHYROIDISM SECONDARY
     Route: 048
     Dates: end: 20161214
  5. EPOETIN ALFA [Concomitant]
     Active Substance: ERYTHROPOIETIN
     Route: 042
     Dates: end: 20160513
  6. VELPHORO [Suspect]
     Active Substance: FERRIC OXYHYDROXIDE
     Route: 048
     Dates: start: 20160706, end: 20161220
  7. ROCALTROL [Concomitant]
     Active Substance: CALCITRIOL
     Route: 048
     Dates: end: 20160621
  8. NESP [Concomitant]
     Active Substance: DARBEPOETIN ALFA
     Indication: NEPHROGENIC ANAEMIA
     Route: 042
     Dates: start: 20160516, end: 20161128
  9. REBAMIPIDE [Concomitant]
     Active Substance: REBAMIPIDE
     Indication: GASTROINTESTINAL ULCER
     Dates: start: 20161206
  10. DAIKENCHUTO [Concomitant]
     Active Substance: HERBALS
     Indication: GASTROINTESTINAL ULCER
     Route: 048
     Dates: start: 20161220
  11. EPOETIN ALFA BS [Concomitant]
     Active Substance: ERYTHROPOIETIN
     Indication: NEPHROGENIC ANAEMIA
     Dates: start: 20161205
  12. REGPARA [Concomitant]
     Active Substance: CINACALCET HYDROCHLORIDE
     Route: 048
     Dates: start: 20170215
  13. CALCITRIOL. [Concomitant]
     Active Substance: CALCITRIOL
     Route: 042
     Dates: start: 20160620
  14. RED BLOOD CELLS, CONCENTRATED/LEUKOCYTES REDUCED [Concomitant]
     Dates: start: 20161213, end: 20161213
  15. RED BLOOD CELLS, CONCENTRATED/LEUKOCYTES REDUCED [Concomitant]
     Indication: GASTROINTESTINAL ULCER
     Dates: start: 20161207, end: 20161207

REACTIONS (2)
  - Constipation [Recovered/Resolved]
  - Gastrointestinal ulcer [Recovered/Resolved]

NARRATIVE: CASE EVENT DATE: 201606
